FAERS Safety Report 7691931-8 (Version None)
Quarter: 2011Q3

REPORT INFORMATION
  Report Type: 
  Country: None (occurrence: None)
  Receive Date: 20110818
  Receipt Date: 20110816
  Transmission Date: 20111222
  Serious: Yes (Death, Hospitalization, Other)
  Sender: FDA-Public Use
  Company Number: JP-B.I. PHARMACEUTICALS,INC./RIDGEFIELD-2011-BP-19279NB

PATIENT
  Age: 83 Year
  Sex: Female

DRUGS (5)
  1. FAMOTIDINE [Concomitant]
  2. PRADAXA [Suspect]
     Indication: CEREBROVASCULAR ACCIDENT PROPHYLAXIS
     Dosage: 220 MG
     Route: 048
     Dates: start: 20110722
  3. CARVEDILOL [Concomitant]
  4. ASPIRIN [Concomitant]
     Indication: THROMBOSIS PROPHYLAXIS
     Dosage: 100 MG
     Route: 048
  5. DIART [Concomitant]

REACTIONS (5)
  - SHOCK [None]
  - HAEMATURIA [None]
  - HAEMORRHAGIC DIATHESIS [None]
  - MELAENA [None]
  - GASTROINTESTINAL HAEMORRHAGE [None]
